FAERS Safety Report 6387486-0 (Version None)
Quarter: 2009Q4

REPORT INFORMATION
  Report Type: 
  Country: None (occurrence: None)
  Receive Date: 20091005
  Receipt Date: 20090924
  Transmission Date: 20100525
  Serious: Yes (Hospitalization)
  Sender: FDA-Public Use
  Company Number: ES-BIOGENIDEC-2009BI021144

PATIENT
  Age: 50 Year
  Sex: Female

DRUGS (3)
  1. AVONEX [Suspect]
     Indication: MULTIPLE SCLEROSIS
     Route: 030
     Dates: start: 20060208, end: 20090624
  2. AVONEX [Suspect]
     Route: 030
     Dates: start: 20090625
  3. PARACETAMOL [Concomitant]

REACTIONS (2)
  - BENIGN LUNG NEOPLASM [None]
  - LUNG CARCINOMA CELL TYPE UNSPECIFIED STAGE I [None]
